FAERS Safety Report 17147860 (Version 2)
Quarter: 2023Q2

REPORT INFORMATION
  Report Type: Report from Study
  Country: JP (occurrence: JP)
  Receive Date: 20191212
  Receipt Date: 20230628
  Transmission Date: 20230722
  Serious: Yes (Death, Hospitalization)
  Sender: FDA-Public Use
  Company Number: JP-PFIZER INC-2019494789

PATIENT
  Age: 73 Year
  Sex: Male
  Weight: 57.5 kg

DRUGS (1)
  1. VYNDAQEL [Suspect]
     Active Substance: TAFAMIDIS MEGLUMINE
     Indication: Cardiac amyloidosis
     Dosage: 80 MG, 1X/DAY
     Route: 048
     Dates: start: 20191016, end: 20200831

REACTIONS (5)
  - Cardiovascular disorder [Fatal]
  - Renal failure [Recovering/Resolving]
  - Hyperkalaemia [Recovering/Resolving]
  - Dehydration [Recovering/Resolving]
  - Decreased appetite [Recovered/Resolved]

NARRATIVE: CASE EVENT DATE: 20191030
